FAERS Safety Report 8941130 (Version 2)
Quarter: 2013Q1

REPORT INFORMATION
  Report Type: Spontaneous
  Country: CN (occurrence: CN)
  Receive Date: 20121203
  Receipt Date: 20130205
  Transmission Date: 20140127
  Serious: Yes (Other)
  Sender: FDA-Public Use
  Company Number: CN-JNJFOC-20120912538

PATIENT
  Age: 2 Year
  Sex: Male

DRUGS (2)
  1. MOTRIN (IBUPROFEN) [Suspect]
     Indication: BRONCHITIS
     Dosage: 4 ML 3 TIMES PER DAY
     Route: 048
     Dates: start: 20081224, end: 20081228
  2. MOTRIN (IBUPROFEN) [Suspect]
     Indication: PYREXIA
     Dosage: 4 ML 3 TIMES PER DAY
     Route: 048
     Dates: start: 20081224, end: 20081228

REACTIONS (2)
  - Hepatic function abnormal [Recovered/Resolved]
  - White blood cell count decreased [Recovered/Resolved]
